FAERS Safety Report 13153330 (Version 1)
Quarter: 2017Q1

REPORT INFORMATION
  Report Type: Spontaneous
  Country: US (occurrence: US)
  Receive Date: 20170121
  Receipt Date: 20170121
  Transmission Date: 20170428
  Serious: Yes (Disabling)
  Sender: FDA-Public Use
  Company Number: None

PATIENT
  Age: 6 Year
  Sex: Female
  Weight: 17.1 kg

DRUGS (4)
  1. MIRALAX [Suspect]
     Active Substance: POLYETHYLENE GLYCOL 3350
     Indication: CONSTIPATION
     Dosage: QUANTITY:0.5 CAPFUL;?
     Route: 048
     Dates: start: 20121231, end: 20160831
  2. MAGNESIUM [Concomitant]
     Active Substance: MAGNESIUM
  3. CURCUMIN [Concomitant]
     Active Substance: CURCUMIN
  4. OCEAN MINERALS [Concomitant]

REACTIONS (11)
  - Restlessness [None]
  - Thirst [None]
  - Hypotonia [None]
  - Anxiety [None]
  - Muscle tightness [None]
  - Anger [None]
  - Mood swings [None]
  - Pain in extremity [None]
  - Heart rate irregular [None]
  - Disturbance in attention [None]
  - Sensory disturbance [None]

NARRATIVE: CASE EVENT DATE: 20160831
